FAERS Safety Report 10538413 (Version 3)
Quarter: 2015Q1

REPORT INFORMATION
  Report Type: Spontaneous
  Country: GR (occurrence: GR)
  Receive Date: 20141023
  Receipt Date: 20150106
  Transmission Date: 20150720
  Serious: Yes (Death, Other)
  Sender: FDA-Public Use
  Company Number: GR-AMGEN-GRCSP2014081999

PATIENT
  Age: 34 Year
  Sex: Female
  Weight: 53 kg

DRUGS (15)
  1. ZANTAC [Concomitant]
     Active Substance: RANITIDINE HYDROCHLORIDE
     Dosage: 150 MG, FOR THE DAYS CORTISONE IS ADMINISTERED
     Dates: start: 20140702
  2. ADRIBLASTINA [Suspect]
     Active Substance: DOXORUBICIN HYDROCHLORIDE
     Indication: HODGKIN^S DISEASE
     Dosage: 55 MG, UNK
     Route: 042
     Dates: start: 20140702
  3. ZOFRON                             /00955301/ [Suspect]
     Active Substance: ONDANSETRON
     Indication: PROPHYLAXIS OF NAUSEA AND VOMITING
     Dosage: 8MG, WHEN HAVING NAUSEA AND UP TO 2 TABLETS PER DAY
     Route: 065
  4. MESNA. [Suspect]
     Active Substance: MESNA
     Indication: PRODUCT USED FOR UNKNOWN INDICATION
     Dosage: 800 MG BEFORE ENDOXAN AND 4HRS AFTER, UNK
     Route: 065
     Dates: start: 20140702
  5. ONDANSETRON [Suspect]
     Active Substance: ONDANSETRON
     Indication: PROPHYLAXIS OF NAUSEA AND VOMITING
     Route: 065
  6. ARANESP [Suspect]
     Active Substance: DARBEPOETIN ALFA
     Indication: PRODUCT USED FOR UNKNOWN INDICATION
     Dosage: 150 UNK, QWK
     Route: 065
  7. NATULAN [Suspect]
     Active Substance: PROCARBAZINE HYDROCHLORIDE
     Indication: HODGKIN^S DISEASE
     Dosage: 50 MG, TID
     Route: 048
     Dates: start: 20140702
  8. PREDNISOLONE. [Suspect]
     Active Substance: PREDNISOLONE
     Indication: PRODUCT USED FOR UNKNOWN INDICATION
     Dosage: 20MG 3 TIMES A DAY FOR DAYS1-14
     Route: 048
  9. TEVAGRASTIM [Suspect]
     Active Substance: FILGRASTIM
     Indication: WHITE BLOOD CELL COUNT DECREASED
     Dosage: UNK
     Route: 065
     Dates: start: 20140710, end: 20140712
  10. PREZOLON [Suspect]
     Active Substance: PREDNISOLONE
     Indication: HODGKIN^S DISEASE
     Dosage: 20 MG, TID
     Route: 048
  11. ETOPOSIDE. [Suspect]
     Active Substance: ETOPOSIDE
     Indication: HODGKIN^S DISEASE
     Dosage: 300 MG, UNK
     Route: 042
     Dates: start: 20140702
  12. ZYLORIC [Concomitant]
     Active Substance: ALLOPURINOL
     Dosage: 3MG, QD
     Dates: start: 20140702
  13. ENDOXAN                            /00021101/ [Suspect]
     Active Substance: CYCLOPHOSPHAMIDE
     Indication: HODGKIN^S DISEASE
     Dosage: 1950 MG, UNK
     Route: 042
     Dates: start: 20140702
  14. ONDASEPROL [Suspect]
     Active Substance: ONDANSETRON HYDROCHLORIDE
     Indication: PRODUCT USED FOR UNKNOWN INDICATION
     Dosage: UNK
     Route: 065
  15. EMEND [Suspect]
     Active Substance: APREPITANT
     Indication: PROPHYLAXIS OF NAUSEA AND VOMITING
     Dosage: 125-80-80 THE 3 FIRST DAY OF EACH CYCLE
     Route: 048
     Dates: start: 20140702

REACTIONS (8)
  - Aspiration [Fatal]
  - Neutropenia [Unknown]
  - Cardiac arrest [Fatal]
  - Vomiting [Unknown]
  - Tachycardia [Unknown]
  - Myocardial ischaemia [Fatal]
  - Pyrexia [Unknown]
  - Diarrhoea [Unknown]

NARRATIVE: CASE EVENT DATE: 20140709
